FAERS Safety Report 13947008 (Version 1)
Quarter: 2017Q3

REPORT INFORMATION
  Report Type: Spontaneous
  Country: US (occurrence: US)
  Receive Date: 20170907
  Receipt Date: 20170907
  Transmission Date: 20171128
  Serious: No
  Sender: FDA-Public Use
  Company Number: US-BIOGEN-2017BI00451922

PATIENT
  Sex: Female

DRUGS (3)
  1. TYSABRI [Suspect]
     Active Substance: NATALIZUMAB
     Indication: MULTIPLE SCLEROSIS
     Route: 065
     Dates: start: 20080423, end: 20080910
  2. TYSABRI [Suspect]
     Active Substance: NATALIZUMAB
     Dates: start: 20160727
  3. TYSABRI [Suspect]
     Active Substance: NATALIZUMAB
     Dates: start: 20100916, end: 20121227

REACTIONS (2)
  - Cognitive disorder [Not Recovered/Not Resolved]
  - Insomnia [Recovered/Resolved]
